FAERS Safety Report 9110789 (Version 1)
Quarter: 2013Q1

REPORT INFORMATION
  Report Type: Spontaneous
  Country: US (occurrence: US)
  Receive Date: 20130219
  Receipt Date: 20130219
  Transmission Date: 20140127
  Serious: No
  Sender: FDA-Public Use
  Company Number: US-BRISTOL-MYERS SQUIBB COMPANY-17028556

PATIENT
  Age: 56 Year
  Sex: Female
  Weight: 48.98 kg

DRUGS (2)
  1. ORENCIA [Suspect]
     Indication: RHEUMATOID ARTHRITIS
     Dosage: LAST INF:26SEP12
     Route: 042
     Dates: end: 20120926
  2. METRONIDAZOLE [Concomitant]

REACTIONS (1)
  - Clostridium difficile infection [Unknown]
